FAERS Safety Report 19658285 (Version 1)
Quarter: 2021Q3

REPORT INFORMATION
  Report Type: Spontaneous
  Country: US (occurrence: US)
  Receive Date: 20210804
  Receipt Date: 20210804
  Transmission Date: 20211014
  Serious: Yes (Other)
  Sender: FDA-Public Use
  Company Number: NVSC2021US174213

PATIENT
  Age: 19 Month
  Sex: Female

DRUGS (3)
  1. TRAMETINIB [Suspect]
     Active Substance: TRAMETINIB
     Indication: NEUROBLASTOMA
     Dosage: UNK
     Route: 048
     Dates: start: 20150130
  2. DABRAFENIB [Suspect]
     Active Substance: DABRAFENIB
     Indication: NEUROBLASTOMA
     Dosage: UNK
     Route: 048
     Dates: start: 20141021, end: 20141118
  3. DABRAFENIB [Suspect]
     Active Substance: DABRAFENIB
     Dosage: UNK
     Route: 048
     Dates: start: 20150130

REACTIONS (5)
  - Malignant neoplasm progression [Unknown]
  - Neuroblastoma recurrent [Unknown]
  - Neuroblastoma [Unknown]
  - Product use in unapproved indication [Unknown]
  - Product use issue [Unknown]
